FAERS Safety Report 20988212 (Version 2)
Quarter: 2022Q3

REPORT INFORMATION
  Report Type: Spontaneous
  Country: RU (occurrence: None)
  Receive Date: 20220621
  Receipt Date: 20220706
  Transmission Date: 20221026
  Serious: Yes (Death, Hospitalization, Other)
  Sender: FDA-Public Use
  Company Number: 2022A227150

PATIENT
  Age: 67 Year
  Sex: Male
  Weight: 60 kg

DRUGS (8)
  1. EVUSHELD [Suspect]
     Active Substance: CILGAVIMAB\TIXAGEVIMAB
     Indication: COVID-19 prophylaxis
     Dosage: 150 MG AND 150 MG SINGLE ADMINISTRATION
     Route: 030
     Dates: start: 20220603
  2. METHYLPREDNISOLONE [Concomitant]
     Active Substance: METHYLPREDNISOLONE
     Dosage: 6.0MG UNKNOWN
  3. CYCLOSPORINE [Concomitant]
     Active Substance: CYCLOSPORINE
     Dosage: 150.0MG UNKNOWN
  4. VALSARTAN [Concomitant]
     Active Substance: VALSARTAN
     Dosage: 80.0MG UNKNOWN
  5. BISOPROLOL [Concomitant]
     Active Substance: BISOPROLOL
     Dosage: 10.0MG UNKNOWN
  6. COLCHICINE [Concomitant]
     Active Substance: COLCHICINE
     Dosage: 1.0MG UNKNOWN
  7. DIFLUCAN [Concomitant]
     Active Substance: FLUCONAZOLE
     Dosage: 200 MG IV FOR 7 DAYS
  8. MYFORTIC [Concomitant]
     Active Substance: MYCOPHENOLATE SODIUM

REACTIONS (13)
  - Sepsis [Fatal]
  - Multiple organ dysfunction syndrome [Fatal]
  - Blood creatine phosphokinase increased [Unknown]
  - Diarrhoea [Not Recovered/Not Resolved]
  - Myalgia [Not Recovered/Not Resolved]
  - Sleep disorder [Not Recovered/Not Resolved]
  - Decreased appetite [Not Recovered/Not Resolved]
  - Leukopenia [Unknown]
  - Lymphopenia [Unknown]
  - Hyponatraemia [Unknown]
  - Transaminases increased [Unknown]
  - C-reactive protein increased [Unknown]
  - Dehydration [Unknown]

NARRATIVE: CASE EVENT DATE: 20220608
